FAERS Safety Report 20263915 (Version 1)
Quarter: 2021Q4

REPORT INFORMATION
  Report Type: Report from Study
  Country: AU (occurrence: AU)
  Receive Date: 20211231
  Receipt Date: 20211231
  Transmission Date: 20220303
  Serious: Yes (Hospitalization)
  Sender: FDA-Public Use
  Company Number: AU-JNJFOC-20211249250

PATIENT
  Age: 78 Year
  Sex: Male

DRUGS (1)
  1. ABIRATERONE ACETATE [Suspect]
     Active Substance: ABIRATERONE ACETATE
     Indication: Hormone-refractory prostate cancer
     Route: 048
     Dates: start: 20210224, end: 20210710

REACTIONS (3)
  - Thrombocytopenia [Recovered/Resolved with Sequelae]
  - Gingival bleeding [Recovered/Resolved with Sequelae]
  - Contusion [Recovered/Resolved with Sequelae]

NARRATIVE: CASE EVENT DATE: 20210101
